FAERS Safety Report 24580548 (Version 2)
Quarter: 2024Q4

REPORT INFORMATION
  Report Type: Spontaneous
  Country: US (occurrence: US)
  Receive Date: 20241105
  Receipt Date: 20241216
  Transmission Date: 20250114
  Serious: Yes (Hospitalization)
  Sender: HERON
  Company Number: US-HERON THERAPEUTICS, INC-HRTX-2024-001053

PATIENT
  Age: 44 Year
  Sex: Female

DRUGS (6)
  1. ZYNRELEF [Suspect]
     Active Substance: BUPIVACAINE\MELOXICAM
     Indication: Postoperative analgesia
     Dosage: UNK, SINGLE
     Dates: start: 20240920, end: 20240920
  2. ZYNRELEF [Suspect]
     Active Substance: BUPIVACAINE\MELOXICAM
     Indication: Hysterectomy
  3. ZYNRELEF [Suspect]
     Active Substance: BUPIVACAINE\MELOXICAM
     Indication: Salpingectomy
  4. ZYNRELEF [Suspect]
     Active Substance: BUPIVACAINE\MELOXICAM
     Indication: Laparotomy
  5. ZYNRELEF [Suspect]
     Active Substance: BUPIVACAINE\MELOXICAM
     Indication: Adhesiolysis
  6. ZYNRELEF [Suspect]
     Active Substance: BUPIVACAINE\MELOXICAM
     Indication: Cystoscopy

REACTIONS (2)
  - Pelvic mass [Unknown]
  - Adnexa uteri mass [Unknown]

NARRATIVE: CASE EVENT DATE: 20241014
